FAERS Safety Report 18073614 (Version 1)
Quarter: 2020Q3

REPORT INFORMATION
  Report Type: Report from Study
  Country: US (occurrence: US)
  Receive Date: 20200727
  Receipt Date: 20200727
  Transmission Date: 20201103
  Serious: Yes (Other)
  Sender: FDA-Public Use
  Company Number: US-SHIRE-US201924249AA

PATIENT
  Age: 62 Year
  Sex: Female

DRUGS (1)
  1. HUMAN NORMAL IMMUNOGLOBULIN; LIQUID 20 [Suspect]
     Active Substance: HUMAN IMMUNOGLOBULIN G
     Indication: PRIMARY IMMUNODEFICIENCY SYNDROME
     Dosage: UNK
     Route: 065
     Dates: end: 201907

REACTIONS (4)
  - Endocrine ophthalmopathy [Recovering/Resolving]
  - Gastrooesophageal reflux disease [Recovered/Resolved]
  - Arthritis [Unknown]
  - Weight increased [Unknown]

NARRATIVE: CASE EVENT DATE: 20190723
